FAERS Safety Report 5684166-1 (Version None)
Quarter: 2008Q1

REPORT INFORMATION
  Report Type: 
  Country: None (occurrence: None)
  Receive Date: 20080328
  Receipt Date: 20071010
  Transmission Date: 20080703
  Serious: No
  Sender: FDA-Public Use
  Company Number: US-AMGEN-KDL247446

PATIENT
  Sex: Female

DRUGS (3)
  1. NEULASTA [Suspect]
     Indication: CHEMOTHERAPY
     Dates: start: 19980101
  2. NEUPOGEN [Suspect]
  3. EPOGEN [Suspect]
     Dates: start: 19980101

REACTIONS (1)
  - TOOTH LOSS [None]
